FAERS Safety Report 6383130-7 (Version None)
Quarter: 2009Q3

REPORT INFORMATION
  Report Type: 
  Country: None (occurrence: None)
  Receive Date: 20090928
  Receipt Date: 20090917
  Transmission Date: 20100115
  Serious: Yes (Hospitalization)
  Sender: FDA-Public Use
  Company Number: 1-20014213

PATIENT
  Age: 48 Year
  Sex: Female
  Weight: 61.2356 kg

DRUGS (3)
  1. FENTANYL [Suspect]
     Indication: PAIN
     Dosage: 100MCG/HR EVERY 2 DAY, TRANSDERMAL
     Route: 062
  2. ZYDONE (HYDROCODONE BITARTRATE AND ACETAMINOPHEN) [Concomitant]
  3. SOMA [Concomitant]

REACTIONS (9)
  - APPARENT DEATH [None]
  - CONFUSIONAL STATE [None]
  - DEPRESSION [None]
  - DIZZINESS [None]
  - FALL [None]
  - HYPOAESTHESIA [None]
  - INSOMNIA [None]
  - PATELLA FRACTURE [None]
  - RESTLESS LEGS SYNDROME [None]
